FAERS Safety Report 8438410-8 (Version None)
Quarter: 2012Q2

REPORT INFORMATION
  Report Type: 
  Country: None (occurrence: None)
  Receive Date: 20120614
  Receipt Date: 20120605
  Transmission Date: 20120825
  Serious: Yes (Hospitalization)
  Sender: FDA-Public Use
  Company Number: US-ELI_LILLY_AND_COMPANY-US201206002103

PATIENT
  Age: 85 Year
  Sex: Female

DRUGS (14)
  1. AMBIEN [Concomitant]
     Dosage: UNK
  2. FORTEO [Suspect]
     Indication: OSTEOPOROSIS
     Dosage: 20 UG, QD
     Dates: start: 20111214
  3. PRAVASTATIN [Concomitant]
     Dosage: UNK
  4. CALCIUM [Concomitant]
     Dosage: UNK
  5. DIOVAN [Concomitant]
     Dosage: UNK
  6. MULTI-VITAMIN [Concomitant]
     Dosage: UNK
  7. LEVSIN PB [Concomitant]
     Dosage: UNK
  8. CETIRIZINE [Concomitant]
     Dosage: UNK
  9. CELEBREX [Concomitant]
     Dosage: UNK
  10. CALCIUM CARBONATE [Concomitant]
     Dosage: UNK
  11. NEXIUM [Concomitant]
     Dosage: UNK
  12. ASPIRIN [Concomitant]
     Dosage: UNK
  13. CARVEDILOL [Concomitant]
     Dosage: UNK
  14. AMLODIPINE BESYLATE [Concomitant]
     Dosage: UNK

REACTIONS (3)
  - SEPSIS [None]
  - GALLBLADDER DISORDER [None]
  - CYSTITIS [None]
